FAERS Safety Report 4084400 (Version 10)
Quarter: 2013Q4

REPORT INFORMATION
  Report Type: Spontaneous
  Country: GB (occurrence: GB)
  Receive Date: 20040209
  Receipt Date: 20131212
  Transmission Date: 20140711
  Serious: Yes (Death, Other)
  Sender: FDA-Public Use
  Company Number: GB-ROCHE-358047

PATIENT
  Sex: Male
  Weight: 73 kg

DRUGS (1)
  1. ROACCUTANE [Suspect]
     Indication: ACNE
     Route: 048
     Dates: start: 20031212, end: 20040108

REACTIONS (13)
  - Completed suicide [Fatal]
  - Depression [Not Recovered/Not Resolved]
  - Self-injurious ideation [Unknown]
  - Social avoidant behaviour [Unknown]
  - Fatigue [Unknown]
  - Stress [Unknown]
  - Asocial behaviour [Unknown]
  - Abnormal behaviour [Unknown]
  - Lip dry [Unknown]
  - Pain [Unknown]
  - Insomnia [Unknown]
  - Feeling cold [Unknown]
  - Disturbance in attention [Unknown]
